FAERS Safety Report 5087584-8 (Version None)
Quarter: 2006Q3

REPORT INFORMATION
  Report Type: 
  Country: None (occurrence: None)
  Receive Date: 20060822
  Receipt Date: 20060822
  Transmission Date: 20061208
  Serious: Yes (Other)
  Sender: FDA-Public Use
  Company Number: None

PATIENT
  Age: 28 Year
  Sex: Female

DRUGS (19)
  1. ALPRAZOLAM [Suspect]
     Indication: SEDATION
     Dosage: 3MG   QHS   PO
     Route: 048
  2. MORPHINE [Suspect]
     Indication: PAIN
     Dosage: 1MG    ONCE     IV BOLUS
     Route: 040
     Dates: start: 20060425, end: 20060425
  3. HYDROMORPHONE HCL [Concomitant]
  4. PROGRAF [Concomitant]
  5. CELLCEPT [Concomitant]
  6. PREDNISONE TAB [Concomitant]
  7. MYCELEX [Concomitant]
  8. VALCYTE [Concomitant]
  9. RANITIDINE [Concomitant]
  10. NYSTATIN [Concomitant]
  11. SMX/TMP DS [Concomitant]
  12. OXYCODONE HCL [Concomitant]
  13. NORVASC [Concomitant]
  14. EFFEXOR XR [Concomitant]
  15. LIPITOR [Concomitant]
  16. TOPROL-XL [Concomitant]
  17. WELLBUTRIN [Concomitant]
  18. METOCLOPRAMIDE [Concomitant]
  19. INSULIN PUMP [Concomitant]

REACTIONS (3)
  - DEPRESSED LEVEL OF CONSCIOUSNESS [None]
  - SEDATION [None]
  - SELF-MEDICATION [None]
